FAERS Safety Report 14961313 (Version 1)
Quarter: 2018Q2

REPORT INFORMATION
  Report Type: Spontaneous
  Country: PT (occurrence: PT)
  Receive Date: 20180601
  Receipt Date: 20180601
  Transmission Date: 20180711
  Serious: Yes (Other)
  Sender: FDA-Public Use
  Company Number: PT-AUROBINDO-AUR-APL-2018-028057

PATIENT
  Age: 1 Year
  Sex: Male
  Weight: 12 kg

DRUGS (1)
  1. AMOXICILLIN GENERIS [Suspect]
     Active Substance: AMOXICILLIN
     Indication: OTITIS MEDIA ACUTE
     Dosage: 4 ML 8/8H
     Route: 048
     Dates: start: 20180205, end: 20180206

REACTIONS (5)
  - Product use issue [Unknown]
  - Pruritus generalised [Recovered/Resolved]
  - Rash maculo-papular [Recovered/Resolved]
  - Generalised erythema [Recovered/Resolved]
  - Rash [Recovered/Resolved]

NARRATIVE: CASE EVENT DATE: 20180205
